FAERS Safety Report 9351965 (Version 2)
Quarter: 2013Q3

REPORT INFORMATION
  Report Type: Spontaneous
  Country: US (occurrence: US)
  Receive Date: 20130617
  Receipt Date: 20130726
  Transmission Date: 20140515
  Serious: No
  Sender: FDA-Public Use
  Company Number: US-BIOGENIDEC-2013BI053242

PATIENT
  Age: 43 Year
  Sex: Female

DRUGS (2)
  1. TYSABRI [Suspect]
     Indication: MULTIPLE SCLEROSIS
     Route: 042
     Dates: start: 20120712, end: 20130620
  2. AVONEX [Concomitant]
     Indication: MULTIPLE SCLEROSIS
     Route: 030

REACTIONS (6)
  - Sleep disorder [Unknown]
  - Pain in extremity [Unknown]
  - Neutralising antibodies positive [Not Recovered/Not Resolved]
  - Arthralgia [Unknown]
  - Multiple sclerosis relapse [Unknown]
  - Urticaria [Recovered/Resolved]
